FAERS Safety Report 5816154-6 (Version None)
Quarter: 2008Q3

REPORT INFORMATION
  Report Type: 
  Country: None (occurrence: None)
  Receive Date: 20080717
  Receipt Date: 20080717
  Transmission Date: 20090109
  Serious: Yes (Other)
  Sender: FDA-Public Use
  Company Number: None

PATIENT
  Age: 53 Year
  Sex: Female
  Weight: 64.8644 kg

DRUGS (7)
  1. EFFEXOR [Suspect]
     Indication: DEPRESSION
     Dosage: 75 MG ONE PO QD
     Route: 048
     Dates: start: 20080625
  2. PAXIL [Concomitant]
  3. PROZAC [Concomitant]
  4. CELEXA [Concomitant]
  5. ZOLOFT [Concomitant]
  6. WELLBUTRIN SR [Concomitant]
  7. XANAX [Concomitant]

REACTIONS (6)
  - ANXIETY [None]
  - BLOOD PRESSURE INCREASED [None]
  - DIZZINESS [None]
  - LETHARGY [None]
  - NERVOUSNESS [None]
  - SOMNOLENCE [None]
